FAERS Safety Report 20769571 (Version 9)
Quarter: 2025Q1

REPORT INFORMATION
  Report Type: Spontaneous
  Country: US (occurrence: US)
  Receive Date: 20220429
  Receipt Date: 20250114
  Transmission Date: 20250409
  Serious: Yes (Other)
  Sender: PFIZER
  Company Number: US-PFIZER INC-2021681704

PATIENT
  Age: 76 Year
  Sex: Female

DRUGS (5)
  1. XELJANZ [Suspect]
     Active Substance: TOFACITINIB CITRATE
     Dosage: 5 MG, 2X/DAY
     Route: 048
  2. XELJANZ [Suspect]
     Active Substance: TOFACITINIB CITRATE
     Dosage: 10 MG, 2X/DAY
     Route: 048
  3. XELJANZ [Suspect]
     Active Substance: TOFACITINIB CITRATE
     Dosage: 5 MG, 2X/DAY
  4. XARELTO [Concomitant]
     Active Substance: RIVAROXABAN
  5. OXYBUTYNIN [Concomitant]
     Active Substance: OXYBUTYNIN

REACTIONS (8)
  - Ligament sprain [Unknown]
  - Fungal foot infection [Unknown]
  - Pain [Unknown]
  - Mobility decreased [Unknown]
  - Incontinence [Unknown]
  - Oropharyngeal discomfort [Unknown]
  - Cough [Unknown]
  - Arthritis [Unknown]
